FAERS Safety Report 7945079-5 (Version None)
Quarter: 2011Q4

REPORT INFORMATION
  Report Type: 
  Country: None (occurrence: None)
  Receive Date: 20111129
  Receipt Date: 20111122
  Transmission Date: 20120403
  Serious: Yes (Hospitalization)
  Sender: FDA-Public Use
  Company Number: US-SANOFI-AVENTIS-2011SA024062

PATIENT
  Age: 68 Year
  Sex: Male
  Weight: 102.4 kg

DRUGS (22)
  1. CALCIUM CHANNEL BLOCKERS [Concomitant]
  2. PROCHLORPERAZINE [Concomitant]
     Indication: NAUSEA
     Dosage: AS NEEDED
     Route: 065
  3. CASODEX [Suspect]
     Indication: PROSTATE CANCER
     Dosage: 50 MG ORALLY DAILY FOR 4 WEEKS
     Route: 048
     Dates: start: 20110406, end: 20110407
  4. PIOGLITAZONE [Concomitant]
     Route: 048
  5. ALLOPURINOL [Concomitant]
     Route: 048
  6. ALL OTHER THERAPEUTIC PRODUCTS [Concomitant]
  7. CHOLESTEROL- AND TRIGLYCERIDE REDUCERS [Concomitant]
  8. ALL OTHER THERAPEUTIC PRODUCTS [Concomitant]
  9. ALL OTHER THERAPEUTIC PRODUCTS [Concomitant]
  10. ZETIA [Concomitant]
     Route: 048
  11. ANALGESICS [Concomitant]
     Indication: PROPHYLAXIS
  12. ALL OTHER THERAPEUTIC PRODUCTS [Concomitant]
  13. DOCETAXEL [Suspect]
     Indication: PROSTATE CANCER
     Dosage: 75 MG/M2 INTRAVENOUSLY (IV) ONCE PER 3 WEEKS FOR 10 CYCLES
     Route: 041
     Dates: start: 20110406, end: 20110406
  14. ATENOLOL [Concomitant]
     Route: 048
  15. DILTIAZEM HCL [Concomitant]
     Route: 065
  16. ELIGARD [Suspect]
     Indication: PROSTATE CANCER
     Dosage: 22.5 MG SUBCUTANEOUSLY (SC) EVERY 3 MONTHS FOR 18 MONTHS
     Route: 058
     Dates: start: 20110406, end: 20110406
  17. ASPIRIN [Concomitant]
     Route: 065
  18. CRESTOR [Concomitant]
     Route: 048
  19. IMDUR [Concomitant]
     Route: 048
  20. DEXAMETHASONE [Concomitant]
     Dosage: DAY BEFORE AND AFTER CHEMOTHERAPY
     Route: 065
  21. ALL OTHER THERAPEUTIC PRODUCTS [Concomitant]
  22. ANTIEMETICS AND ANTINAUSEANTS [Concomitant]
     Indication: PROPHYLAXIS

REACTIONS (1)
  - ANGINA PECTORIS [None]
